FAERS Safety Report 16095282 (Version 2)
Quarter: 2019Q1

REPORT INFORMATION
  Report Type: Spontaneous
  Country: US (occurrence: US)
  Receive Date: 20190320
  Receipt Date: 20190321
  Transmission Date: 20190418
  Serious: No
  Sender: FDA-Public Use
  Company Number: US-PFIZER INC-2019116288

PATIENT
  Age: 57 Year
  Sex: Male

DRUGS (1)
  1. XELJANZ [Suspect]
     Active Substance: TOFACITINIB CITRATE
     Dosage: 5 MG, UNK
     Dates: start: 20181031

REACTIONS (5)
  - Blood pressure fluctuation [Unknown]
  - Blood pressure increased [Unknown]
  - Peripheral swelling [Unknown]
  - Weight increased [Unknown]
  - Rash [Unknown]
